FAERS Safety Report 11291164 (Version 1)
Quarter: 2015Q3

REPORT INFORMATION
  Report Type: Spontaneous
  Country: US (occurrence: None)
  Receive Date: 20150720
  Receipt Date: 20150720
  Transmission Date: 20151125
  Serious: Yes (Life-Threatening)
  Sender: FDA-Public Use
  Company Number: None

PATIENT
  Age: 55 Year
  Sex: Male
  Weight: 103.6 kg

DRUGS (1)
  1. PRAVASTATIN [Suspect]
     Active Substance: PRAVASTATIN\PRAVASTATIN SODIUM
     Indication: HYPERLIPIDAEMIA
     Dosage: 40 MG  PM  PO
     Route: 048
     Dates: end: 20120613

REACTIONS (8)
  - Dry mouth [None]
  - Dyspnoea [None]
  - Hypertension [None]
  - Nocturia [None]
  - Papule [None]
  - Myalgia [None]
  - Rhabdomyolysis [None]
  - Fluid retention [None]

NARRATIVE: CASE EVENT DATE: 20120312
